FAERS Safety Report 19148447 (Version 10)
Quarter: 2023Q1

REPORT INFORMATION
  Report Type: Report from Study
  Country: FR (occurrence: FR)
  Receive Date: 20210416
  Receipt Date: 20230118
  Transmission Date: 20230417
  Serious: Yes (Hospitalization, Other)
  Sender: FDA-Public Use
  Company Number: FR-PFIZER INC-2020496113

PATIENT
  Age: 88 Year
  Sex: Female
  Weight: 54 kg

DRUGS (17)
  1. AMLODIPINE [Suspect]
     Active Substance: AMLODIPINE BESYLATE
     Indication: Hypertension
     Dosage: UNK
     Route: 048
  2. CANDESARTAN [Suspect]
     Active Substance: CANDESARTAN
     Indication: Hypertension
     Dosage: UNK
     Route: 048
  3. IBRANCE [Suspect]
     Active Substance: PALBOCICLIB
     Indication: Product used for unknown indication
     Dosage: 100 MILLIGRAM, QD (100 MG, 1X/DAY)
     Route: 065
     Dates: start: 20200309
  4. IBRANCE [Suspect]
     Active Substance: PALBOCICLIB
     Dosage: 100 MILLIGRAM
     Route: 065
     Dates: start: 20200617, end: 20200707
  5. IBRANCE [Suspect]
     Active Substance: PALBOCICLIB
     Dosage: 100 MILLIGRAM
     Route: 065
     Dates: start: 20200727, end: 20200816
  6. IBRANCE [Suspect]
     Active Substance: PALBOCICLIB
     Dosage: 125 MILLIGRAM,QD 125 MG, 1X/DAY(1 TABLET PER DAY)
     Route: 065
     Dates: start: 20200309, end: 20200611
  7. IBRANCE [Suspect]
     Active Substance: PALBOCICLIB
     Dosage: 100 MILLIGRAM, QD
     Route: 065
     Dates: start: 20200612
  8. IBRANCE [Suspect]
     Active Substance: PALBOCICLIB
     Indication: Product used for unknown indication
     Dosage: 125 MG, QD (125 MG, 1X/DAY (1 TABLET PER DAY))
     Route: 065
     Dates: start: 20200309, end: 20200329
  9. IBRANCE [Suspect]
     Active Substance: PALBOCICLIB
     Dosage: 125 MG, QD(125 MG, 1X/DAY (1 TABLET PER DAY))
     Route: 065
     Dates: start: 20200309, end: 20200602
  10. IBRANCE [Suspect]
     Active Substance: PALBOCICLIB
     Dosage: 125 MG, QD(125 MG, 1X/DAY (1 TABLET PER DAY))
     Route: 048
     Dates: start: 20200309, end: 20200611
  11. IBRANCE [Suspect]
     Active Substance: PALBOCICLIB
     Dosage: 125 MG, QD (125 MG, 1X/DAY (1 TABLET PER DAY)
     Route: 065
     Dates: start: 20200414, end: 20200602
  12. IBRANCE [Suspect]
     Active Substance: PALBOCICLIB
     Dosage: 100 MG, 1X/DAY (1 TABLET PER DAY)
     Route: 065
     Dates: start: 20200612
  13. PALBOCICLIB [Suspect]
     Active Substance: PALBOCICLIB
     Indication: Breast cancer
     Dosage: 125 MILLIGRAM, QD, 125 MG, 1X/DAY
     Route: 065
     Dates: start: 20200309, end: 20200611
  14. PALBOCICLIB [Suspect]
     Active Substance: PALBOCICLIB
     Dosage: 100 MILLIGRAM, QD, 100 MG, 1X/DAY
     Route: 065
     Dates: start: 20200612
  15. FASLODEX [Concomitant]
     Active Substance: FULVESTRANT
     Indication: Breast cancer
     Dosage: UNK, UNKNOWN DOSE AND FREQUENCY
     Route: 030
     Dates: start: 20200309
  16. BISOPROLOL [Concomitant]
     Active Substance: BISOPROLOL
     Indication: Angina pectoris
     Dosage: UNK
     Route: 048
  17. BISOPROLOL [Concomitant]
     Active Substance: BISOPROLOL
     Indication: Hypertension

REACTIONS (7)
  - Loss of personal independence in daily activities [Recovered/Resolved with Sequelae]
  - Fall [Recovered/Resolved with Sequelae]
  - General physical health deterioration [Not Recovered/Not Resolved]
  - Asthenia [Recovered/Resolved]
  - Neutropenia [Not Recovered/Not Resolved]
  - Escherichia urinary tract infection [Recovered/Resolved]
  - Hypotension [Recovered/Resolved]

NARRATIVE: CASE EVENT DATE: 20200801
